FAERS Safety Report 10273603 (Version 1)
Quarter: 2014Q2

REPORT INFORMATION
  Report Type: Spontaneous
  Country: US (occurrence: None)
  Receive Date: 20140630
  Receipt Date: 20140630
  Transmission Date: 20141212
  Serious: Yes (Other)
  Sender: FDA-Public Use
  Company Number: None

PATIENT
  Age: 40 Year
  Sex: Female
  Weight: 70.76 kg

DRUGS (1)
  1. LYRICA [Suspect]
     Indication: RADICULOPATHY
     Dates: start: 20140626, end: 20140627

REACTIONS (3)
  - Confusional state [None]
  - Memory impairment [None]
  - Crying [None]
